FAERS Safety Report 5008839-9 (Version None)
Quarter: 2006Q2

REPORT INFORMATION
  Report Type: 
  Country: None (occurrence: None)
  Receive Date: 20060519
  Receipt Date: 20060505
  Transmission Date: 20061013
  Serious: Yes (Hospitalization)
  Sender: FDA-Public Use
  Company Number: A-US2006-12221

PATIENT
  Age: 51 Year
  Sex: Male

DRUGS (3)
  1. TRACLEER [Suspect]
     Indication: PULMONARY HYPERTENSION
     Dosage: SEE IMAGE
     Route: 048
     Dates: end: 20060411
  2. GLIPIZIDE (GLIPIZINE) [Concomitant]
  3. PREDNISONE TAB [Concomitant]

REACTIONS (3)
  - HEPATOCELLULAR DAMAGE [None]
  - NAUSEA [None]
  - VOMITING [None]
